FAERS Safety Report 18526026 (Version 1)
Quarter: 2020Q4

REPORT INFORMATION
  Report Type: Spontaneous
  Country: US (occurrence: US)
  Receive Date: 20201120
  Receipt Date: 20201120
  Transmission Date: 20210114
  Serious: No
  Sender: FDA-Public Use
  Company Number: NVSC2020US303833

PATIENT

DRUGS (3)
  1. LETROZOLE. [Suspect]
     Active Substance: LETROZOLE
     Indication: PRODUCT USED FOR UNKNOWN INDICATION
     Route: 065
  2. IBRANCE [Suspect]
     Active Substance: PALBOCICLIB
     Dosage: 75 MG, QD, ON MONDAYS TO FRIDAYS THEN OFF ON SATURDAYS AND SUNDAYS
     Route: 048
     Dates: start: 20201102
  3. IBRANCE [Suspect]
     Active Substance: PALBOCICLIB
     Indication: BREAST CANCER METASTATIC
     Dosage: 75 MG, QD, 21 DAYS ON AND 7 DAYS OFF
     Route: 048

REACTIONS (3)
  - White blood cell count decreased [Unknown]
  - Dry skin [Unknown]
  - Diarrhoea [Recovered/Resolved]
